FAERS Safety Report 9830538 (Version 3)
Quarter: 2014Q2

REPORT INFORMATION
  Report Type: Spontaneous
  Country: FI (occurrence: FI)
  Receive Date: 20140120
  Receipt Date: 20140408
  Transmission Date: 20141212
  Serious: Yes (Life-Threatening, Hospitalization)
  Sender: FDA-Public Use
  Company Number: FI-NOVOPROD-398057

PATIENT
  Age: 63 Year
  Sex: Female
  Weight: 89 kg

DRUGS (7)
  1. VICTOZA [Suspect]
     Indication: DIABETES MELLITUS
     Dosage: 1.2 MG, QD
     Route: 058
     Dates: start: 20131209, end: 20131225
  2. LEVEMIR FLEXPEN [Concomitant]
     Indication: DIABETES MELLITUS
     Dosage: 60 U, QD
     Route: 058
  3. DIFORMIN [Concomitant]
     Indication: DIABETES MELLITUS
     Dosage: 3 G, QD (RETARD 1 G DEPOTTABL)
     Route: 048
     Dates: end: 20131225
  4. ENALAPRIL COMP [Concomitant]
     Indication: BLOOD PRESSURE ABNORMAL
     Dosage: 1 MG, QD ( 20 MG/12.5 MG)
     Route: 048
  5. SIMVASTATIN ACTAVIS [Concomitant]
     Indication: BLOOD CHOLESTEROL ABNORMAL
     Dosage: 20 MG, QD
     Route: 048
  6. TENOBLOCK [Concomitant]
     Indication: BLOOD PRESSURE ABNORMAL
     Dosage: 100 MG, QD (50 MG)
     Route: 048
  7. THYROXIN [Concomitant]
     Indication: THYROID DISORDER
     Dosage: 0.2 MG, QD (0.1 MG)
     Route: 048

REACTIONS (3)
  - Acidosis [Recovered/Resolved]
  - Renal failure acute [Recovered/Resolved]
  - Drug interaction [Unknown]
